FAERS Safety Report 9705014 (Version 1)
Quarter: 2013Q4

REPORT INFORMATION
  Report Type: Spontaneous
  Country: US (occurrence: US)
  Receive Date: 20131122
  Receipt Date: 20131122
  Transmission Date: 20140711
  Serious: No
  Sender: FDA-Public Use
  Company Number: US-ABBVIE-13P-163-1134035-00

PATIENT
  Age: 50 Year
  Sex: Male
  Weight: 111.23 kg

DRUGS (3)
  1. ANDROGEL [Suspect]
     Indication: BLOOD TESTOSTERONE DECREASED
     Dates: start: 20130729
  2. OMEPRAZOLE [Concomitant]
     Indication: DYSPEPSIA
  3. AMBIEN [Concomitant]
     Indication: SLEEP DISORDER

REACTIONS (1)
  - Chondrocalcinosis pyrophosphate [Recovering/Resolving]
